FAERS Safety Report 20843029 (Version 3)
Quarter: 2023Q1

REPORT INFORMATION
  Report Type: Report from Study
  Country: IT (occurrence: None)
  Receive Date: 20220518
  Receipt Date: 20230206
  Transmission Date: 20230417
  Serious: Yes (Death)
  Sender: FDA-Public Use
  Company Number: IT-ROCHE-2839095

PATIENT
  Age: 77 Year
  Sex: Male
  Weight: 64.8 kg

DRUGS (2)
  1. ATEZOLIZUMAB [Suspect]
     Active Substance: ATEZOLIZUMAB
     Indication: Hepatocellular carcinoma
     Dosage: ON 14/APR/2021, RECEIVED MOST RECENT DOSE OF ATEZOLIZUMAB 1200 MG
     Route: 041
     Dates: start: 20201204
  2. BEVACIZUMAB [Suspect]
     Active Substance: BEVACIZUMAB
     Indication: Hepatocellular carcinoma
     Dosage: ON 14/APR/2021, RECEIVED MOST RECENT DOSE OF BEVACIZUMAB 1005 MG
     Route: 042
     Dates: start: 20201204

REACTIONS (1)
  - Enterovesical fistula [Fatal]

NARRATIVE: CASE EVENT DATE: 20210524
